FAERS Safety Report 22830716 (Version 8)
Quarter: 2024Q2

REPORT INFORMATION
  Report Type: Report from Study
  Country: US (occurrence: US)
  Receive Date: 20230817
  Receipt Date: 20240521
  Transmission Date: 20240715
  Serious: Yes (Other)
  Sender: FDA-Public Use
  Company Number: US-ACADIA PHARMACEUTICALS INC.-ACA-2023-TRF-003352

PATIENT
  Age: 17 Year
  Sex: Female

DRUGS (46)
  1. DAYBUE [Suspect]
     Active Substance: TROFINETIDE
     Indication: Rett syndrome
     Dosage: 15 MILLILITER, BID
     Route: 048
     Dates: start: 20230711
  2. DAYBUE [Suspect]
     Active Substance: TROFINETIDE
     Dosage: 5 MILLILITER
     Route: 048
     Dates: start: 20230717
  3. DAYBUE [Suspect]
     Active Substance: TROFINETIDE
     Dosage: 20 MILLILITER, BID
     Route: 048
     Dates: start: 20230807, end: 20230810
  4. DAYBUE [Suspect]
     Active Substance: TROFINETIDE
     Dosage: 5 MILLILITER, BID
     Route: 048
     Dates: start: 20230821
  5. DAYBUE [Suspect]
     Active Substance: TROFINETIDE
     Dosage: 5 MILLILITER, BID
     Route: 048
     Dates: start: 20230823, end: 20230911
  6. DAYBUE [Suspect]
     Active Substance: TROFINETIDE
     Dosage: 2.5 MILLILITER, BID
     Route: 048
     Dates: start: 20231002
  7. DAYBUE [Suspect]
     Active Substance: TROFINETIDE
     Dosage: 0.5 MILLILITER, BID
     Route: 048
     Dates: start: 20231030
  8. BRIVIACT [Concomitant]
     Active Substance: BRIVARACETAM
     Dosage: 100 MILLIGRAM, BID
     Route: 048
  9. BRIVIACT [Concomitant]
     Active Substance: BRIVARACETAM
     Dosage: 25 MILLIGRAM, BID
     Route: 048
  10. BRIVIACT [Concomitant]
     Active Substance: BRIVARACETAM
     Dosage: 125 MILLIGRAM, BID
     Route: 048
  11. BUSPIRONE [Concomitant]
     Active Substance: BUSPIRONE HYDROCHLORIDE
  12. VITAMINS NOS [Concomitant]
     Active Substance: VITAMINS
     Dosage: TAKE BY MOUTH
     Route: 048
  13. CLONIDINE [Concomitant]
     Active Substance: CLONIDINE
     Dosage: (0.1 MG) 2.5 TABS AT NIGHT
  14. CYTRA-K [Concomitant]
     Active Substance: CITRIC ACID MONOHYDRATE\POTASSIUM CITRATE
  15. DIAZEPAM [Concomitant]
     Active Substance: DIAZEPAM
  16. DIVALPROEX SODIUM [Concomitant]
     Active Substance: DIVALPROEX SODIUM
  17. FLUOXETINE [Concomitant]
     Active Substance: FLUOXETINE HYDROCHLORIDE
  18. IMODIUM [Concomitant]
     Active Substance: LOPERAMIDE HYDROCHLORIDE
     Dosage: 10 MILLILITER, BID
     Route: 048
  19. KELNOR 1/35 [Concomitant]
     Active Substance: ETHINYL ESTRADIOL\ETHYNODIOL DIACETATE
     Dosage: 1/50 1-50 MG-MCG
     Route: 048
  20. LAMOTRIGINE [Concomitant]
     Active Substance: LAMOTRIGINE
  21. LEVOCARNITINE [Concomitant]
     Active Substance: LEVOCARNITINE
  22. LORATADINE [Concomitant]
     Active Substance: LORATADINE
  23. NAYZILAM [Concomitant]
     Active Substance: MIDAZOLAM
     Indication: Seizure
     Dosage: 5 MG/0.1 ML, PLACE 1 SPRAY INTO THE NOSE AS NEEDED
  24. DEXTRAN [Concomitant]
     Active Substance: DEXTRAN
  25. OMEPRAZOLE [Concomitant]
     Active Substance: DONEPEZIL HYDROCHLORIDE\OMEPRAZOLE\OMEPRAZOLE MAGNESIUM
  26. VALIUM [Concomitant]
     Active Substance: DIAZEPAM
     Indication: Seizure
     Dosage: TAKE 5 TO 10 ML BY MOUTH EVERY 6-8HRS PRN
  27. VALIUM [Concomitant]
     Active Substance: DIAZEPAM
     Indication: Agitation
  28. VALIUM [Concomitant]
     Active Substance: DIAZEPAM
     Indication: Anxiety
  29. VALIUM [Concomitant]
     Active Substance: DIAZEPAM
     Indication: Seizure cluster
  30. BACTRIM [Concomitant]
     Active Substance: SULFAMETHOXAZOLE\TRIMETHOPRIM
     Indication: Urinary tract infection
  31. CITRIC ACID MONOHYDRATE\SODIUM CITRATE [Concomitant]
     Active Substance: CITRIC ACID MONOHYDRATE\SODIUM CITRATE
     Dosage: TAKE 22.5 ML BY MOUTH ONCE DAILY
     Route: 048
  32. PROZAC [Concomitant]
     Active Substance: FLUOXETINE HYDROCHLORIDE
     Indication: Affective disorder
     Dosage: 20 MILLIGRAM 1 TABLET IN THE PM (PATIENT TAKING DIFFERENTLY: TAKE 1 TABLET BY MOUTH ONCE EVERY MORNI
     Route: 048
  33. BUSPAR [Concomitant]
     Active Substance: BUSPIRONE HYDROCHLORIDE
     Indication: Affective disorder
     Dosage: 10 MILLIGRAM 1 TABLET BID (PATIENT TAKING DIFFERENTLY: TAKE 2 TABLETS BY MOUTH ONCE DAILY)
     Route: 048
  34. CLARITIN [Concomitant]
     Active Substance: LORATADINE
     Indication: Hypersensitivity
     Dosage: 10 MILLIGRAM, TAKE 1 TABLET BY MOUTH ONCE DAILY AS NEEDED
     Route: 048
  35. PRILOSEC [Concomitant]
     Active Substance: OMEPRAZOLE MAGNESIUM
     Dosage: 20 MILLIGRAM, QD
     Route: 048
  36. PATANOL [Concomitant]
     Active Substance: OLOPATADINE HYDROCHLORIDE
     Dosage: INSTILL 1 DROP TWICE A DAY AS NEEDED
     Route: 047
  37. ZOFRAN [Concomitant]
     Active Substance: ONDANSETRON HYDROCHLORIDE
     Dosage: 8 MILLIGRAM, QD, TAKE 1 TABLET BY MOUTH EVERY 8 HOURS
     Route: 048
  38. MIRALAX [Concomitant]
     Active Substance: POLYETHYLENE GLYCOL 3350
     Dosage: 17 GRAM, QD
     Route: 048
  39. CATAPRES [Concomitant]
     Active Substance: CLONIDINE HYDROCHLORIDE
     Dosage: TAKE 2.5 TABLETS BY MOUTH AT NIGHT
  40. DEPAKOTE [Concomitant]
     Active Substance: DIVALPROEX SODIUM
     Dosage: 125 MILLIGRAM, TAKE 3 CAPSULES BY MOUTH TWICE DAILY
     Route: 048
  41. DEPAKOTE [Concomitant]
     Active Substance: DIVALPROEX SODIUM
     Dosage: 375 MILLIGRAM, BID
     Route: 048
  42. LAMICTAL [Concomitant]
     Active Substance: LAMOTRIGINE
     Dosage: 100 MILLIGRAM, BID
     Route: 048
  43. LAMICTAL [Concomitant]
     Active Substance: LAMOTRIGINE
     Dosage: 25 MILLIGRAM, BID
     Route: 048
  44. LAMICTAL [Concomitant]
     Active Substance: LAMOTRIGINE
     Dosage: 125 MILLIGRAM, BID
     Route: 048
  45. CARNITOR [Concomitant]
     Active Substance: LEVOCARNITINE
     Dosage: 330 MILLIGRAM, TAKE 3 TABLET BY MOUTH IN THE MORNING AND 2 TABLETS AT NIGHT
     Route: 048
  46. MINERALS\VITAMINS [Concomitant]
     Active Substance: MINERALS\VITAMINS
     Dosage: TAKE BY MOUTH

REACTIONS (9)
  - Seizure [Not Recovered/Not Resolved]
  - Vomiting projectile [Recovered/Resolved]
  - Vomiting projectile [Not Recovered/Not Resolved]
  - Underdose [Not Recovered/Not Resolved]
  - Product use complaint [Unknown]
  - Product dose omission issue [Recovered/Resolved]
  - Diarrhoea [Not Recovered/Not Resolved]
  - Diarrhoea [Recovered/Resolved]
  - Diarrhoea [Unknown]

NARRATIVE: CASE EVENT DATE: 20230801
